FAERS Safety Report 15221032 (Version 2)
Quarter: 2018Q3

REPORT INFORMATION
  Report Type: Spontaneous
  Country: US (occurrence: US)
  Receive Date: 20180731
  Receipt Date: 20180807
  Transmission Date: 20181010
  Serious: Yes (Hospitalization, Other)
  Sender: FDA-Public Use
  Company Number: US-GLAXOSMITHKLINE-US2018GSK134519

PATIENT
  Sex: Female

DRUGS (2)
  1. VENTOLIN [Suspect]
     Active Substance: ALBUTEROL SULFATE
     Indication: SJOGREN^S SYNDROME
     Dosage: UNK
     Route: 055
     Dates: start: 201712
  2. ANORO ELLIPTA [Suspect]
     Active Substance: UMECLIDINIUM BROMIDE\VILANTEROL TRIFENATATE
     Indication: SJOGREN^S SYNDROME
     Dosage: UNK
     Route: 055
     Dates: start: 201712

REACTIONS (6)
  - Product use in unapproved indication [Unknown]
  - Malaise [Unknown]
  - Staphylococcal infection [Unknown]
  - Lung infection [Unknown]
  - Pneumonia [Unknown]
  - Pyrexia [Unknown]
